FAERS Safety Report 24771475 (Version 2)
Quarter: 2025Q1

REPORT INFORMATION
  Report Type: Spontaneous
  Country: US (occurrence: US)
  Receive Date: 20241224
  Receipt Date: 20250102
  Transmission Date: 20250408
  Serious: Yes (Disabling)
  Sender: BAUSCH AND LOMB
  Company Number: US-MLMSERVICE-20241210-PI285322-00177-1

PATIENT
  Age: 44 Year
  Sex: Male

DRUGS (3)
  1. HYDROCORTISONE [Suspect]
     Active Substance: HYDROCORTISONE
     Indication: Immunosuppression
     Route: 065
  2. TACROLIMUS [Suspect]
     Active Substance: TACROLIMUS
     Indication: Immunosuppressant drug therapy
     Dosage: DAILY
     Route: 065
  3. ZOLEDRONIC ACID [Concomitant]
     Active Substance: ZOLEDRONIC ACID
     Indication: Intestinal transplant

REACTIONS (1)
  - Osteoporosis [Recovering/Resolving]
